FAERS Safety Report 4622427-5 (Version None)
Quarter: 2005Q1

REPORT INFORMATION
  Report Type: 
  Country: None (occurrence: None)
  Receive Date: 20050330
  Receipt Date: 20050322
  Transmission Date: 20050727
  Serious: Yes (Hospitalization, Other)
  Sender: FDA-Public Use
  Company Number: SEWYE525722MAR05

PATIENT
  Age: 63 Year
  Sex: Female

DRUGS (3)
  1. ENBREL [Suspect]
     Indication: RHEUMATOID ARTHRITIS
     Dosage: ONE INJECTION 2 TIMES PER WEEK
     Route: 058
     Dates: start: 19990101, end: 20040715
  2. CONJUGATED ESTROGEN [Concomitant]
     Dosage: 0.625 MG EVERY SECOND DAY
     Dates: end: 20040201
  3. PRIMOLUT-NOR [Concomitant]
     Dosage: 2.5 MG EVERY SECOND OR EVERY THREE MONTHS
     Dates: end: 20040201

REACTIONS (2)
  - CONGESTIVE CARDIOMYOPATHY [None]
  - PULMONARY OEDEMA [None]
